FAERS Safety Report 16000614 (Version 7)
Quarter: 2020Q2

REPORT INFORMATION
  Report Type: Spontaneous
  Country: US (occurrence: US)
  Receive Date: 20190225
  Receipt Date: 20200624
  Transmission Date: 20200713
  Serious: No
  Sender: FDA-Public Use
  Company Number: US-PFIZER INC-2019076848

PATIENT
  Age: 72 Year
  Sex: Female
  Weight: 68.04 kg

DRUGS (4)
  1. ACETAZOLAMIDE. [Concomitant]
     Active Substance: ACETAZOLAMIDE
     Dosage: 250 MG, 2X/DAY
     Route: 048
  2. CELONTIN [Suspect]
     Active Substance: METHSUXIMIDE
     Indication: CLONIC CONVULSION
     Dosage: 1800 MG, 1X/DAY (SIX 300MG CAPSULES ONCE A DAY BY)
     Route: 048
  3. CELONTIN [Suspect]
     Active Substance: METHSUXIMIDE
     Indication: SEIZURE
     Dosage: 300 MG, EVERY 4 HRS(6 TIMES A DAY;1800MG DAILY,6 CAPSULES DAILY IN DIVIDED DOSES FOR ATLEAST 16YRS)
     Route: 048
  4. CELONTIN [Suspect]
     Active Substance: METHSUXIMIDE
     Indication: EPILEPSY

REACTIONS (6)
  - Fatigue [Unknown]
  - Asthenia [Unknown]
  - Therapeutic product effect incomplete [Unknown]
  - Electroencephalogram abnormal [Unknown]
  - Off label use [Unknown]
  - Stress [Unknown]
